FAERS Safety Report 5800500-3 (Version None)
Quarter: 2008Q3

REPORT INFORMATION
  Report Type: 
  Country: None (occurrence: None)
  Receive Date: 20080703
  Receipt Date: 20080627
  Transmission Date: 20090109
  Serious: Yes (Death, Hospitalization)
  Sender: FDA-Public Use
  Company Number: B0526173A

PATIENT
  Age: 75 Year
  Sex: Male
  Weight: 80 kg

DRUGS (7)
  1. RITMONORM [Suspect]
     Indication: ARRHYTHMIA
     Dosage: 300MG PER DAY
     Route: 048
  2. RITMONORM [Suspect]
     Dosage: 600MG PER DAY
     Route: 048
  3. CEPHALOSPORIN [Suspect]
     Indication: LUNG INFECTION
     Route: 065
  4. CARVEDILOL [Concomitant]
  5. DIGOXIN [Concomitant]
  6. LOSARTAN [Concomitant]
  7. SPIRONOLACTONE [Concomitant]

REACTIONS (10)
  - ARRHYTHMIA [None]
  - CARDIO-RESPIRATORY ARREST [None]
  - CARDIOMYOPATHY [None]
  - DYSPNOEA [None]
  - HYPERPROTEINAEMIA [None]
  - HYPERSENSITIVITY [None]
  - LUNG INFECTION [None]
  - MUSCLE DISORDER [None]
  - PRODUCTIVE COUGH [None]
  - PYREXIA [None]
